FAERS Safety Report 23097914 (Version 1)
Quarter: 2023Q4

REPORT INFORMATION
  Report Type: Spontaneous
  Country: US (occurrence: None)
  Receive Date: 20231020
  Receipt Date: 20231020
  Transmission Date: 20240110
  Serious: No
  Sender: FDA-Public Use
  Company Number: None

PATIENT
  Sex: Female

DRUGS (2)
  1. AMBRISENTAN [Suspect]
     Active Substance: AMBRISENTAN
     Indication: Pulmonary arterial hypertension
     Dosage: FREQUENCY : DAILY;?
     Route: 048
     Dates: start: 202309
  2. UPTRAVI [Concomitant]
     Active Substance: SELEXIPAG

REACTIONS (8)
  - Weight increased [None]
  - Peripheral swelling [None]
  - Joint swelling [None]
  - Headache [None]
  - Insomnia [None]
  - Mood altered [None]
  - Frustration tolerance decreased [None]
  - Emotional disorder [None]
